FAERS Safety Report 8691030 (Version 5)
Quarter: 2014Q1

REPORT INFORMATION
  Report Type: Report from Study
  Country: GB (occurrence: GB)
  Receive Date: 20120730
  Receipt Date: 20140121
  Transmission Date: 20141002
  Serious: Yes (Hospitalization, Other)
  Sender: FDA-Public Use
  Company Number: GB-JNJFOC-20120710472

PATIENT
  Age: 72 Year
  Sex: Male
  Weight: 97 kg

DRUGS (5)
  1. ABIRATERONE ACETATE [Suspect]
     Indication: PROSTATE CANCER
     Dosage: CYCLE 8
     Route: 048
     Dates: start: 20111230, end: 20120718
  2. DECAPEPTYL [Suspect]
     Indication: PROSTATE CANCER
     Route: 030
     Dates: start: 20111007
  3. SIMVASTATIN [Concomitant]
     Route: 048
  4. TAMSULOSIN [Concomitant]
     Route: 048
  5. NATRILIX [Concomitant]
     Route: 048
     Dates: end: 20120710

REACTIONS (1)
  - Renal impairment [Not Recovered/Not Resolved]
